FAERS Safety Report 7638440-X (Version None)
Quarter: 2011Q3

REPORT INFORMATION
  Report Type: 
  Country: None (occurrence: None)
  Receive Date: 20110727
  Receipt Date: 20110713
  Transmission Date: 20111222
  Serious: Yes (Hospitalization)
  Sender: FDA-Public Use
  Company Number: ES-ELI_LILLY_AND_COMPANY-ES201107003601

PATIENT
  Sex: Female
  Weight: 67 kg

DRUGS (3)
  1. OSTEOPOR [Concomitant]
     Indication: BONE DISORDER
     Dosage: 1 DF, BID
     Route: 048
  2. VITAMINA D [Concomitant]
     Indication: BONE DISORDER
     Dosage: 1 DF, QD
     Route: 048
  3. FORTEO [Suspect]
     Indication: OSTEOPOROSIS
     Dosage: 20 UG, QD
     Route: 058
     Dates: start: 20100617

REACTIONS (3)
  - PATELLA FRACTURE [None]
  - BLOOD URIC ACID INCREASED [None]
  - INTRA-ABDOMINAL HAEMATOMA [None]
